FAERS Safety Report 15981595 (Version 6)
Quarter: 2019Q1

REPORT INFORMATION
  Report Type: Report from Study
  Country: HU (occurrence: HU)
  Receive Date: 20190219
  Receipt Date: 20190330
  Transmission Date: 20190418
  Serious: Yes (Hospitalization, Other)
  Sender: FDA-Public Use
  Company Number: PHHY2019HU036231

PATIENT
  Age: 70 Year
  Sex: Male
  Weight: 50 kg

DRUGS (6)
  1. PANTOPRAZOLE [Concomitant]
     Active Substance: PANTOPRAZOLE
     Indication: PRODUCT USED FOR UNKNOWN INDICATION
     Dosage: 40 MG, BID, TABLET
     Route: 048
     Dates: start: 20181002
  2. ACETYLSALICYLIC ACID [Concomitant]
     Active Substance: ASPIRIN
     Indication: PRODUCT USED FOR UNKNOWN INDICATION
     Dosage: 100 MG, UNK
     Route: 048
     Dates: start: 20181002
  3. TASIGNA [Suspect]
     Active Substance: NILOTINIB
     Indication: CHRONIC MYELOID LEUKAEMIA
     Dosage: 400 MG, BID
     Route: 048
     Dates: start: 20130730, end: 20181012
  4. ATORVASTATIN [Concomitant]
     Active Substance: ATORVASTATIN
     Indication: HYPERCHOLESTEROLAEMIA
     Dosage: 20 MG, QD
     Route: 048
     Dates: start: 20181002
  5. FUROSEMIDE. [Suspect]
     Active Substance: FUROSEMIDE
     Indication: CARDIAC FAILURE
     Dosage: 40 MG, QD
     Route: 048
     Dates: start: 20181002
  6. AMLODIPINE [Concomitant]
     Active Substance: AMLODIPINE BESYLATE
     Indication: ESSENTIAL HYPERTENSION
     Dosage: 40 MG, UNK
     Route: 048
     Dates: start: 20181002

REACTIONS (18)
  - Enterocolitis [Unknown]
  - Oedema peripheral [Unknown]
  - Enterocolitis [Recovered/Resolved]
  - Transient ischaemic attack [Unknown]
  - Nausea [Unknown]
  - Fatigue [Unknown]
  - Tricuspid valve incompetence [Unknown]
  - Ascites [Unknown]
  - Cardiac failure [Unknown]
  - Clostridium difficile infection [Recovered/Resolved]
  - Mitral valve incompetence [Unknown]
  - Clostridium difficile infection [Unknown]
  - Hydrothorax [Unknown]
  - Left ventricular hypertrophy [Unknown]
  - Electrolyte imbalance [Unknown]
  - Aortic valve incompetence [Unknown]
  - Cerebral infarction [Unknown]
  - Subileus [Unknown]

NARRATIVE: CASE EVENT DATE: 201504
